FAERS Safety Report 20565695 (Version 3)
Quarter: 2022Q2

REPORT INFORMATION
  Report Type: Spontaneous
  Country: JP (occurrence: JP)
  Receive Date: 20220308
  Receipt Date: 20220524
  Transmission Date: 20220721
  Serious: No
  Sender: FDA-Public Use
  Company Number: JP-GLAXOSMITHKLINE-JP2022JPN039497

PATIENT

DRUGS (5)
  1. SOTROVIMAB [Suspect]
     Active Substance: SOTROVIMAB
     Indication: COVID-19
     Dosage: 500 MG/DAY
     Route: 042
     Dates: start: 20220228, end: 20220228
  2. ALDOMET [Suspect]
     Active Substance: METHYLDOPA
     Indication: Hypertension
     Dosage: 500 MG/DAY
     Route: 048
     Dates: start: 20220225
  3. MAGNESIUM OXIDE [Suspect]
     Active Substance: MAGNESIUM OXIDE
     Indication: Constipation
     Dosage: 660 MG/DAY
     Route: 048
     Dates: start: 20220227
  4. VEKLURY [Suspect]
     Active Substance: REMDESIVIR
     Indication: COVID-19
     Dosage: 200 MG/DAY
     Route: 042
     Dates: start: 20220227, end: 20220227
  5. VEKLURY [Suspect]
     Active Substance: REMDESIVIR
     Dosage: 100 MG/DAY
     Route: 042
     Dates: start: 20220228, end: 20220301

REACTIONS (1)
  - Exposure during pregnancy [Unknown]
